FAERS Safety Report 23305873 (Version 3)
Quarter: 2024Q2

REPORT INFORMATION
  Report Type: Report from Study
  Country: US (occurrence: US)
  Receive Date: 20231218
  Receipt Date: 20240517
  Transmission Date: 20240716
  Serious: Yes (Hospitalization)
  Sender: FDA-Public Use
  Company Number: US-ABBVIE-5541183

PATIENT
  Sex: Female

DRUGS (3)
  1. SKYRIZI [Suspect]
     Active Substance: RISANKIZUMAB-RZAA
     Indication: Psoriasis
     Route: 058
     Dates: start: 20231120
  2. KESIMPTA [Concomitant]
     Active Substance: OFATUMUMAB
     Indication: Product used for unknown indication
     Route: 065
     Dates: start: 2021, end: 202310
  3. KESIMPTA [Concomitant]
     Active Substance: OFATUMUMAB
     Indication: Product used for unknown indication
     Dosage: LOADING DOSE
     Route: 065
     Dates: start: 20240425

REACTIONS (10)
  - Urinary tract infection [Recovered/Resolved]
  - COVID-19 [Unknown]
  - Influenza [Recovering/Resolving]
  - Gait inability [Unknown]
  - Pneumonia [Not Recovered/Not Resolved]
  - Osteomyelitis [Unknown]
  - Peripheral swelling [Unknown]
  - Unevaluable event [Unknown]
  - Movement disorder [Unknown]
  - Urinary tract infection [Unknown]

NARRATIVE: CASE EVENT DATE: 20230101
